FAERS Safety Report 7448341-8 (Version None)
Quarter: 2011Q2

REPORT INFORMATION
  Report Type: 
  Country: None (occurrence: None)
  Receive Date: 20110429
  Receipt Date: 20100512
  Transmission Date: 20111010
  Serious: No
  Sender: FDA-Public Use
  Company Number: US-ASTRAZENECA-2010SE21732

PATIENT
  Age: 44 Year
  Sex: Female
  Weight: 66.2 kg

DRUGS (2)
  1. XYZAL [Concomitant]
  2. NEXIUM [Suspect]
     Indication: GASTROOESOPHAGEAL REFLUX DISEASE
     Route: 048
     Dates: start: 20100101

REACTIONS (4)
  - REGURGITATION [None]
  - FLATULENCE [None]
  - THROAT IRRITATION [None]
  - DRUG INEFFECTIVE [None]
